FAERS Safety Report 11106870 (Version 4)
Quarter: 2015Q3

REPORT INFORMATION
  Report Type: Spontaneous
  Country: US (occurrence: US)
  Receive Date: 20150512
  Receipt Date: 20150723
  Transmission Date: 20151125
  Serious: Yes (Hospitalization)
  Sender: FDA-Public Use
  Company Number: US-BEH-2015050925

PATIENT
  Age: 36 Year
  Sex: Female
  Weight: 104 kg

DRUGS (16)
  1. BERINERT [Suspect]
     Active Substance: HUMAN C1-ESTERASE INHIBITOR
     Indication: COMPLEMENT FACTOR ABNORMAL
     Dosage: 500 UNIT VIAL
     Route: 042
  2. CLARITIN [Concomitant]
     Active Substance: LORATADINE
     Dosage: 10 MG TAB
     Route: 048
  3. EPIPEN [Concomitant]
     Active Substance: EPINEPHRINE
     Indication: ANAPHYLACTIC REACTION
     Dosage: 0.3 MG PRN AUTOINJECTOR
     Route: 030
  4. HYDROCORTISONE. [Concomitant]
     Active Substance: HYDROCORTISONE
     Dosage: 0.5% CREAM 1 APPLICATION AS NECESSARY
     Route: 061
  5. STERILE WATER [Concomitant]
     Active Substance: WATER
     Dosage: TO RECONSTITUTE
     Route: 042
  6. BERINERT [Suspect]
     Active Substance: HUMAN C1-ESTERASE INHIBITOR
     Dosage: 500 UNIT VIAL
     Route: 042
  7. TRANEXAMIC ACID. [Concomitant]
     Active Substance: TRANEXAMIC ACID
     Dosage: 1 DOSE (POWDER) AS DIRECTED
     Route: 048
  8. SYNTHROID [Concomitant]
     Active Substance: LEVOTHYROXINE SODIUM
     Dosage: 1 TABLET (25 MCG)
     Route: 048
  9. KEFLEX [Concomitant]
     Active Substance: CEPHALEXIN
     Route: 048
  10. CINRYZE [Concomitant]
     Active Substance: HUMAN C1-ESTERASE INHIBITOR
     Indication: HEREDITARY ANGIOEDEMA
     Route: 042
  11. BERINERT [Suspect]
     Active Substance: HUMAN C1-ESTERASE INHIBITOR
     Indication: HEREDITARY ANGIOEDEMA
     Dosage: 2500 UNITS (500 UNIT VIAL)
     Route: 042
  12. SODIUM CHLORIDE. [Concomitant]
     Active Substance: SODIUM CHLORIDE
     Dosage: 0.9% 1-10 ML AS DIRECTED
     Route: 042
  13. HYDROXYZINE HCL [Concomitant]
     Active Substance: HYDROXYZINE HYDROCHLORIDE
     Route: 048
  14. CINRYZE [Concomitant]
     Active Substance: HUMAN C1-ESTERASE INHIBITOR
     Dosage: 1500 UNITS THRICE DAILY
     Route: 042
  15. CENTRUM MULTIVITAMIN [Concomitant]
     Route: 048
  16. CVS MELATONIN [Concomitant]
     Dosage: 1 TAB
     Route: 048

REACTIONS (5)
  - Hospitalisation [Unknown]
  - Cellulitis [Unknown]
  - Hereditary angioedema [Unknown]
  - Nosocomial infection [Unknown]
  - Gastrointestinal disorder [Unknown]

NARRATIVE: CASE EVENT DATE: 20150529
